FAERS Safety Report 25470765 (Version 1)
Quarter: 2025Q2

REPORT INFORMATION
  Report Type: Spontaneous
  Country: IE (occurrence: IE)
  Receive Date: 20250624
  Receipt Date: 20250624
  Transmission Date: 20250717
  Serious: Yes (Other)
  Sender: JOHNSON AND JOHNSON
  Company Number: None

PATIENT
  Sex: Male

DRUGS (1)
  1. DARZALEX [Suspect]
     Active Substance: DARATUMUMAB
     Indication: Product used for unknown indication
     Route: 058
     Dates: start: 20250521

REACTIONS (3)
  - Malaise [Unknown]
  - Pallor [Unknown]
  - Chills [Unknown]

NARRATIVE: CASE EVENT DATE: 20250521
